FAERS Safety Report 17209412 (Version 2)
Quarter: 2020Q1

REPORT INFORMATION
  Report Type: Report from Study
  Country: None (occurrence: HU)
  Receive Date: 20191227
  Receipt Date: 20200110
  Transmission Date: 20200409
  Serious: Yes (Hospitalization)
  Sender: FDA-Public Use
  Company Number: HU-ABBVIE-19K-076-3208095-00

PATIENT
  Age: 69 Year
  Sex: Male
  Weight: 50 kg

DRUGS (15)
  1. ATORVA TEVA [Concomitant]
     Indication: CEREBROVASCULAR ACCIDENT
     Route: 048
     Dates: start: 200808
  2. KETILEPT [Concomitant]
     Active Substance: QUETIAPINE FUMARATE
     Indication: HALLUCINATION
     Route: 048
     Dates: start: 20180406
  3. NUTRIDRINK [Concomitant]
     Active Substance: CARBOHYDRATES\FATTY ACIDS\MINERALS\PROTEIN\VITAMINS
     Indication: PROPHYLAXIS
     Dosage: 100-300 ML
     Route: 048
     Dates: start: 20180330
  4. DUODOPA [Suspect]
     Active Substance: CARBIDOPA\LEVODOPA
     Indication: PARKINSON^S DISEASE
     Dosage: M: 7.5ML, C:3.6MML/H, E:1.5ML - 2X
     Route: 050
     Dates: start: 20170203
  5. TRAMADOLOR [Concomitant]
     Active Substance: TRAMADOL
     Indication: PAIN
     Dosage: 50-100MG
     Route: 048
     Dates: start: 2008
  6. VALSOTENS [Concomitant]
     Active Substance: VALSARTAN
     Indication: HYPERTENSION
     Route: 048
     Dates: start: 2008
  7. QUAMATEL [Concomitant]
     Active Substance: FAMOTIDINE
     Indication: GASTRITIS PROPHYLAXIS
     Route: 048
     Dates: start: 200808, end: 20180406
  8. BREXIN [Concomitant]
     Indication: PAIN
     Route: 048
     Dates: start: 2008
  9. ASPIRIN. [Concomitant]
     Active Substance: ASPIRIN
     Indication: CEREBROVASCULAR ACCIDENT
     Route: 048
     Dates: start: 200808
  10. ESOMEPRAZOL [Concomitant]
     Active Substance: ESOMEPRAZOLE
     Indication: GASTRITIS
     Route: 048
     Dates: start: 20180406
  11. LEVODOPA/CARBIDOPA/ENTACAPONE [Concomitant]
     Active Substance: CARBIDOPA\ENTACAPONE\LEVODOPA
     Indication: PARKINSON^S DISEASE
     Dosage: 150/37.5/200MG
     Route: 048
     Dates: start: 2008, end: 20170203
  12. ALGOFLEX FORTE [Concomitant]
     Indication: PAIN
     Route: 048
     Dates: start: 201803
  13. MIRVEDOL [Concomitant]
     Indication: PARKINSON^S DISEASE
     Route: 048
     Dates: start: 20190404
  14. DICLAC [Concomitant]
     Active Substance: DICLOFENAC
     Indication: PAIN
     Dosage: 50-100MG
     Route: 048
     Dates: start: 2008
  15. MIDERIZONE [Concomitant]
     Indication: MUSCLE SPASMS
     Route: 048
     Dates: start: 2008

REACTIONS (2)
  - Acetabulum fracture [Recovered/Resolved]
  - Clavicle fracture [Recovered/Resolved]

NARRATIVE: CASE EVENT DATE: 20191002
